FAERS Safety Report 13995254 (Version 1)
Quarter: 2017Q3

REPORT INFORMATION
  Report Type: Spontaneous
  Country: LK (occurrence: LK)
  Receive Date: 20170921
  Receipt Date: 20170921
  Transmission Date: 20171128
  Serious: Yes (Hospitalization)
  Sender: FDA-Public Use
  Company Number: LK-LUPIN PHARMACEUTICALS INC.-2017-00459

PATIENT
  Age: 51 Year
  Sex: Male

DRUGS (2)
  1. CEFUROXIME. [Suspect]
     Active Substance: CEFUROXIME
     Indication: JAUNDICE
     Dosage: 750 MG,TID,
     Route: 042
  2. CEFUROXIME. [Suspect]
     Active Substance: CEFUROXIME
     Indication: JAUNDICE
     Dosage: 500 MG,BID,
     Route: 048

REACTIONS (2)
  - Cholestatic liver injury [Recovered/Resolved]
  - Condition aggravated [Recovered/Resolved]
